FAERS Safety Report 18630965 (Version 1)
Quarter: 2020Q4

REPORT INFORMATION
  Report Type: Spontaneous
  Country: US (occurrence: US)
  Receive Date: 20201217
  Receipt Date: 20201217
  Transmission Date: 20210114
  Serious: No
  Sender: FDA-Public Use
  Company Number: US-FERRINGPH-2020FE06593

PATIENT
  Sex: Female

DRUGS (1)
  1. CLENPIQ [Suspect]
     Active Substance: ANHYDROUS CITRIC ACID\MAGNESIUM OXIDE\SODIUM PICOSULFATE
     Indication: BOWEL PREPARATION
     Dosage: 1 BOTTLE
     Route: 048
     Dates: start: 20200922

REACTIONS (2)
  - Abdominal distension [Not Recovered/Not Resolved]
  - Wrong schedule [Not Recovered/Not Resolved]

NARRATIVE: CASE EVENT DATE: 20200922
